FAERS Safety Report 10627181 (Version 2)
Quarter: 2015Q1

REPORT INFORMATION
  Report Type: Spontaneous
  Country: US (occurrence: US)
  Receive Date: 20141204
  Receipt Date: 20150108
  Transmission Date: 20150720
  Serious: No
  Sender: FDA-Public Use
  Company Number: US-GLAXOSMITHKLINE-US2014GSK025261

PATIENT
  Age: 46 Year
  Sex: Female

DRUGS (1)
  1. VENTOLIN HFA [Suspect]
     Active Substance: ALBUTEROL SULFATE
     Indication: ASTHMA
     Dosage: 1 PUFF(S), Z
     Route: 055
     Dates: start: 1990

REACTIONS (4)
  - Sinusitis [Unknown]
  - Product quality issue [Unknown]
  - Wheezing [Unknown]
  - Inhalation therapy [Unknown]

NARRATIVE: CASE EVENT DATE: 201408
